FAERS Safety Report 5316210-5 (Version None)
Quarter: 2007Q2

REPORT INFORMATION
  Report Type: 
  Country: None (occurrence: None)
  Receive Date: 20070503
  Receipt Date: 20070425
  Transmission Date: 20071010
  Serious: Yes (Hospitalization)
  Sender: FDA-Public Use
  Company Number: US-ROXANE LABORATORIES, INC-2007-BP-05665RO

PATIENT
  Age: 57 Year
  Sex: Male

DRUGS (5)
  1. LITHIUM CARBONATE [Suspect]
     Indication: BIPOLAR DISORDER
  2. QUETIAPINE FUMARATE [Concomitant]
  3. PAROXETINE [Concomitant]
  4. VALPROIC ACID [Concomitant]
  5. PROPRANOLOL [Concomitant]

REACTIONS (3)
  - CEREBELLAR ATROPHY [None]
  - RENAL FAILURE ACUTE [None]
  - THERAPEUTIC AGENT TOXICITY [None]
